FAERS Safety Report 5522452-6 (Version None)
Quarter: 2007Q4

REPORT INFORMATION
  Report Type: 
  Country: None (occurrence: None)
  Receive Date: 20071120
  Receipt Date: 20071108
  Transmission Date: 20080405
  Serious: Yes (Other)
  Sender: FDA-Public Use
  Company Number: US-PFIZER INC-2007032047

PATIENT
  Sex: Male
  Weight: 102.1 kg

DRUGS (2)
  1. LIPITOR [Suspect]
     Indication: BLOOD CHOLESTEROL ABNORMAL
     Route: 048
     Dates: start: 20000811, end: 20070101
  2. LIPITOR [Suspect]
     Indication: HYPERLIPIDAEMIA

REACTIONS (23)
  - BACK PAIN [None]
  - BLOOD CREATINE PHOSPHOKINASE INCREASED [None]
  - CYST [None]
  - DIABETES MELLITUS [None]
  - DYSPHAGIA [None]
  - FALL [None]
  - GAIT DISTURBANCE [None]
  - HIGH DENSITY LIPOPROTEIN DECREASED [None]
  - HYPERSENSITIVITY [None]
  - LOW DENSITY LIPOPROTEIN INCREASED [None]
  - MUSCLE SPASMS [None]
  - MUSCULAR WEAKNESS [None]
  - MYOPATHY [None]
  - NEUROPATHY PERIPHERAL [None]
  - PAIN IN EXTREMITY [None]
  - PRESYNCOPE [None]
  - RADICULOPATHY [None]
  - RED CELL DISTRIBUTION WIDTH INCREASED [None]
  - RHEUMATOID FACTOR INCREASED [None]
  - SEBORRHOEIC KERATOSIS [None]
  - SINUS HEADACHE [None]
  - SPINAL COLUMN STENOSIS [None]
  - UNEQUAL LIMB LENGTH [None]
